FAERS Safety Report 4922010-8 (Version None)
Quarter: 2006Q1

REPORT INFORMATION
  Report Type: 
  Country: None (occurrence: None)
  Receive Date: 20060224
  Receipt Date: 20060216
  Transmission Date: 20060701
  Serious: Yes (Hospitalization, Other)
  Sender: FDA-Public Use
  Company Number: BE-SANOFI-SYNTHELABO-A01200601153

PATIENT
  Age: 60 Year
  Sex: Male

DRUGS (4)
  1. PLAQUENIL [Suspect]
     Indication: SYSTEMIC LUPUS ERYTHEMATOSUS
     Route: 048
     Dates: start: 20060103, end: 20060123
  2. SIRDALUD [Concomitant]
     Dosage: UNK
     Route: 065
  3. VALIUM [Concomitant]
     Dosage: UNK
     Route: 065
  4. TEGRETOL [Concomitant]
     Dosage: UNK
     Route: 065

REACTIONS (4)
  - CHEST PAIN [None]
  - DYSPNOEA [None]
  - NAUSEA [None]
  - PALPITATIONS [None]
